FAERS Safety Report 12464572 (Version 1)
Quarter: 2016Q2

REPORT INFORMATION
  Report Type: Spontaneous
  Country: US (occurrence: US)
  Receive Date: 20160614
  Receipt Date: 20160614
  Transmission Date: 20160815
  Serious: Yes (Hospitalization)
  Sender: FDA-Public Use
  Company Number: US-NOVOPROD-495446

PATIENT
  Age: 46 Year
  Sex: Male
  Weight: 78.5 kg

DRUGS (3)
  1. NOVOLIN 70/30 [Suspect]
     Active Substance: INSULIN HUMAN
     Dosage: 55 U, QD (35U QAM AND 20U QPM)
     Route: 058
     Dates: start: 201606
  2. NOVOLIN 70/30 [Suspect]
     Active Substance: INSULIN HUMAN
     Dosage: 55 U, QD (35U QAM AND 20U QPM)
     Route: 058
     Dates: start: 201605, end: 201606
  3. NOVOLIN 70/30 [Suspect]
     Active Substance: INSULIN HUMAN
     Indication: TYPE 1 DIABETES MELLITUS
     Dosage: 55 U, QD (35U QAM AND 20U QPM)
     Route: 058
     Dates: start: 2001, end: 201605

REACTIONS (4)
  - Diabetic ketoacidosis [Recovering/Resolving]
  - Dehydration [Recovering/Resolving]
  - Product quality issue [Recovered/Resolved]
  - Gastrointestinal disorder [Recovering/Resolving]

NARRATIVE: CASE EVENT DATE: 201605
